FAERS Safety Report 18635868 (Version 1)
Quarter: 2020Q4

REPORT INFORMATION
  Report Type: Spontaneous
  Country: US (occurrence: US)
  Receive Date: 20201218
  Receipt Date: 20201218
  Transmission Date: 20210114
  Serious: No
  Sender: FDA-Public Use
  Company Number: US-THERAPEUTICSMD-2020TMD05258

PATIENT
  Age: 69 Year
  Sex: Female
  Weight: 56.7 kg

DRUGS (6)
  1. VITAMIN D3 [Concomitant]
     Active Substance: CHOLECALCIFEROL
  2. TESTOSTERONE. [Concomitant]
     Active Substance: TESTOSTERONE
     Dosage: TO EACH THIGH ON A ROTATING BASIS
  3. IMVEXXY [Suspect]
     Active Substance: ESTRADIOL
     Dosage: 4 ?G; 1X/DAY IN THE MORNING
     Route: 067
     Dates: start: 20201110, end: 20201116
  4. VITAMIN B12 [Concomitant]
     Active Substance: CYANOCOBALAMIN
  5. IMVEXXY [Suspect]
     Active Substance: ESTRADIOL
     Dosage: 4 ?G, 2X/WEEK IN THE MORNING
     Route: 067
     Dates: start: 202011
  6. SKIN AND HAIR SUPPLEMENT [Concomitant]

REACTIONS (3)
  - Off label use [Not Recovered/Not Resolved]
  - Vaginal discharge [Not Recovered/Not Resolved]
  - Ear disorder [Not Recovered/Not Resolved]

NARRATIVE: CASE EVENT DATE: 202011
